FAERS Safety Report 24526646 (Version 1)
Quarter: 2024Q4

REPORT INFORMATION
  Report Type: Report from Study
  Country: US (occurrence: US)
  Receive Date: 20241021
  Receipt Date: 20241021
  Transmission Date: 20250115
  Serious: No
  Sender: ROCHE
  Company Number: US-ROCHE-3228962

PATIENT
  Age: 88 Year
  Sex: Male
  Weight: 100.7 kg

DRUGS (14)
  1. ZELBORAF [Suspect]
     Active Substance: VEMURAFENIB
     Indication: Lung neoplasm malignant
     Dosage: DISPENSE: 30 MONTHLY, REFILLS: 12 TIMES, TAKE 2 TABLET OF 480MG TOTAL BY MOUTH, EVERY 12 HOURS
     Route: 048
  2. ZELBORAF [Suspect]
     Active Substance: VEMURAFENIB
     Indication: Thyroid cancer
     Route: 048
  3. ZELBORAF [Suspect]
     Active Substance: VEMURAFENIB
     Route: 048
  4. ZELBORAF [Suspect]
     Active Substance: VEMURAFENIB
     Dosage: TAKE 720 MG (3 TABLETS) BY MOUTH EVERY 12 HOURS
     Route: 048
  5. NORVASC [Concomitant]
     Active Substance: AMLODIPINE BESYLATE
     Dates: start: 20220901
  6. COREG [Concomitant]
     Active Substance: CARVEDILOL
     Dates: start: 20220818
  7. VITAMIN D3 [Concomitant]
     Active Substance: CHOLECALCIFEROL
  8. COENZYME Q10 [Concomitant]
     Active Substance: DIETARY SUPPLEMENT\UBIDECARENONE
  9. PROSCAR [Concomitant]
     Active Substance: FINASTERIDE
  10. SYNTHROID [Concomitant]
     Active Substance: LEVOTHYROXINE SODIUM
  11. FLOMAX [Concomitant]
     Active Substance: TAMSULOSIN HYDROCHLORIDE
  12. BENADRYL [Concomitant]
     Active Substance: DIPHENHYDRAMINE HYDROCHLORIDE
     Dates: start: 20210930
  13. ICY HOT [Concomitant]
     Active Substance: MENTHOL\METHYL SALICYLATE
  14. PROTONIX [Concomitant]
     Active Substance: PANTOPRAZOLE SODIUM

REACTIONS (4)
  - Off label use [Unknown]
  - Amnesia [Unknown]
  - Rhinorrhoea [Unknown]
  - Alopecia [Unknown]
